FAERS Safety Report 23967834 (Version 5)
Quarter: 2024Q3

REPORT INFORMATION
  Report Type: Spontaneous
  Country: US (occurrence: US)
  Receive Date: 20240612
  Receipt Date: 20240924
  Transmission Date: 20241017
  Serious: No
  Sender: PFIZER
  Company Number: US-PFIZER INC-202400181013

PATIENT
  Age: 12 Year
  Sex: Female

DRUGS (2)
  1. GENOTROPIN [Suspect]
     Active Substance: SOMATROPIN
     Indication: Hypopituitarism
     Dosage: 2.2 MG, DAILY
     Route: 058
     Dates: start: 20240606
  2. GENOTROPIN [Suspect]
     Active Substance: SOMATROPIN
     Indication: Growth hormone deficiency

REACTIONS (5)
  - Product dose omission issue [Unknown]
  - Device power source issue [Unknown]
  - Product communication issue [Unknown]
  - Device use issue [Unknown]
  - Device breakage [Unknown]
